FAERS Safety Report 15981769 (Version 1)
Quarter: 2019Q1

REPORT INFORMATION
  Report Type: Report from Study
  Country: US (occurrence: US)
  Receive Date: 20190219
  Receipt Date: 20190219
  Transmission Date: 20190418
  Serious: Yes (Hospitalization, Other)
  Sender: FDA-Public Use
  Company Number: US-ACTELION-A-US2018-170361

PATIENT
  Age: 61 Year
  Sex: Female

DRUGS (1)
  1. OPSUMIT [Suspect]
     Active Substance: MACITENTAN
     Indication: PRODUCT USED FOR UNKNOWN INDICATION
     Dosage: 10 MG, QD
     Route: 048
     Dates: start: 20170330

REACTIONS (5)
  - Bronchitis [Unknown]
  - Nasal septum deviation [Unknown]
  - Pain [Unknown]
  - Abdominal pain [Unknown]
  - Thyroid mass [Unknown]

NARRATIVE: CASE EVENT DATE: 20180309
